FAERS Safety Report 26149698 (Version 1)
Quarter: 2025Q4

REPORT INFORMATION
  Report Type: Spontaneous
  Country: US (occurrence: None)
  Receive Date: 20251211
  Receipt Date: 20251211
  Transmission Date: 20260118
  Serious: Yes (Death)
  Sender: FDA-CTU
  Company Number: None

PATIENT
  Age: 70 Year
  Sex: Male

DRUGS (16)
  1. AIMOVIG [Suspect]
     Active Substance: ERENUMAB-AOOE
     Indication: Migraine
     Dosage: OTHER FREQUENCY : ONCE MONTNLY;
     Route: 058
     Dates: start: 20220222, end: 20251123
  2. ARDIANCE [Concomitant]
  3. ACCOLATE [Concomitant]
     Active Substance: ZAFIRLUKAST
  4. BACLOFEN [Concomitant]
     Active Substance: BACLOFEN
  5. BUTALBITAL/ACETAMINOPHEN/CAFF [Concomitant]
  6. LASIX [Concomitant]
     Active Substance: FUROSEMIDE
  7. LIPITOR [Concomitant]
     Active Substance: ATORVASTATIN CALCIUM
  8. METFORMIN [Concomitant]
     Active Substance: METFORMIN HYDROCHLORIDE
  9. MULTIVITAMIN MEN [Concomitant]
  10. OXYCODONE [Concomitant]
     Active Substance: OXYCODONE
  11. PROTONIX [Concomitant]
     Active Substance: PANTOPRAZOLE SODIUM
  12. TENORMIN [Concomitant]
     Active Substance: ATENOLOL
  13. ZOLOFT [Concomitant]
     Active Substance: SERTRALINE HYDROCHLORIDE
  14. ZOMIG [Concomitant]
     Active Substance: ZOLMITRIPTAN
  15. ZONEGRAN [Concomitant]
     Active Substance: ZONISAMIDE
  16. XTAMPZA ER [Concomitant]
     Active Substance: OXYCODONE

REACTIONS (1)
  - Death [None]

NARRATIVE: CASE EVENT DATE: 20251123
